FAERS Safety Report 20200388 (Version 1)
Quarter: 2021Q4

REPORT INFORMATION
  Report Type: Report from Study
  Country: US (occurrence: US)
  Receive Date: 20211217
  Receipt Date: 20211217
  Transmission Date: 20220303
  Serious: No
  Sender: FDA-Public Use
  Company Number: US-BIOVITRUM-2021US11908

PATIENT
  Age: 58 Year
  Sex: Male

DRUGS (1)
  1. KINERET [Suspect]
     Active Substance: ANAKINRA
     Indication: Gout
     Route: 058
     Dates: start: 20190221

REACTIONS (5)
  - COVID-19 [Unknown]
  - Sleep disorder [Unknown]
  - Dyspnoea [Unknown]
  - Amnesia [Unknown]
  - Off label use [Not Recovered/Not Resolved]

NARRATIVE: CASE EVENT DATE: 20190221
